FAERS Safety Report 20299366 (Version 1)
Quarter: 2022Q1

REPORT INFORMATION
  Report Type: Spontaneous
  Country: US (occurrence: US)
  Receive Date: 20220105
  Receipt Date: 20220105
  Transmission Date: 20220423
  Serious: Yes (Other)
  Sender: FDA-Public Use
  Company Number: US-BAYER-2022A000068

PATIENT
  Age: 83 Year
  Sex: Male

DRUGS (6)
  1. ASPIRIN [Interacting]
     Active Substance: ASPIRIN
     Dosage: 81 MG, QD
  2. APIXABAN [Interacting]
     Active Substance: APIXABAN
  3. ATORVASTATIN [Concomitant]
     Active Substance: ATORVASTATIN
     Dosage: 80 MG, QD
  4. METOPROLOL [Concomitant]
     Active Substance: METOPROLOL
     Dosage: 75 MG, TID
  5. LISINOPRIL [Concomitant]
     Active Substance: LISINOPRIL
     Dosage: 10 MG, QD
  6. INSULIN NOS [Concomitant]
     Active Substance: INSULIN NOS

REACTIONS (2)
  - Gastrointestinal haemorrhage [None]
  - Labelled drug-drug interaction medication error [None]
